FAERS Safety Report 6610403-2 (Version None)
Quarter: 2010Q1

REPORT INFORMATION
  Report Type: 
  Country: None (occurrence: None)
  Receive Date: 20100302
  Receipt Date: 20100222
  Transmission Date: 20100710
  Serious: Yes (Hospitalization)
  Sender: FDA-Public Use
  Company Number: DK-ABBOTT-08P-044-0438487-00

PATIENT
  Sex: Female
  Weight: 65 kg

DRUGS (8)
  1. HUMIRA [Suspect]
     Indication: CROHN'S DISEASE
     Route: 058
     Dates: start: 20070827, end: 20070910
  2. INFLIXIMAB [Suspect]
     Indication: CROHN'S DISEASE
     Route: 042
     Dates: start: 20061114, end: 20070401
  3. INFLIXIMAB [Suspect]
     Dates: start: 20070604
  4. SALAZOPYRIN [Suspect]
     Indication: DRUG USE FOR UNKNOWN INDICATION
  5. PREDNISOLONE [Concomitant]
     Indication: DRUG USE FOR UNKNOWN INDICATION
     Dosage: 10-15 MG DAILY
     Route: 048
  6. TRANSTEC [Concomitant]
     Indication: DRUG USE FOR UNKNOWN INDICATION
     Dosage: PATCH
     Route: 062
  7. SALAZOPYRIN [Concomitant]
     Indication: ARTHRALGIA
     Dates: start: 20071001
  8. BUPRENORPHINE [Concomitant]
     Indication: DRUG USE FOR UNKNOWN INDICATION

REACTIONS (4)
  - ARTHRALGIA [None]
  - MALAISE [None]
  - NAUSEA [None]
  - SKIN ULCER [None]
